FAERS Safety Report 6587096-6 (Version None)
Quarter: 2010Q1

REPORT INFORMATION
  Report Type: 
  Country: None (occurrence: None)
  Receive Date: 20100217
  Receipt Date: 20090421
  Transmission Date: 20100710
  Serious: No
  Sender: FDA-Public Use
  Company Number: US-ALLERGAN-0905558US

PATIENT
  Age: 49 Year
  Sex: Female

DRUGS (2)
  1. BOTOX [Suspect]
     Indication: DRUG USE FOR UNKNOWN INDICATION
     Dosage: UNK, SINGLE
     Route: 030
     Dates: start: 20090416, end: 20090416
  2. JUVEDERM [Concomitant]

REACTIONS (1)
  - FACIAL PARESIS [None]
